FAERS Safety Report 8015736-3 (Version None)
Quarter: 2011Q4

REPORT INFORMATION
  Report Type: 
  Country: None (occurrence: None)
  Receive Date: 20111230
  Receipt Date: 20111230
  Transmission Date: 20120403
  Serious: Yes (Death, Other)
  Sender: FDA-Public Use
  Company Number: PHHY2011CN101150

PATIENT
  Age: 58 Year
  Sex: Male

DRUGS (2)
  1. SEBIVO [Suspect]
     Indication: HEPATIC NEOPLASM MALIGNANT
     Dosage: 600 MG, PER DAY
     Route: 048
     Dates: start: 20100501
  2. SEBIVO [Suspect]
     Indication: HEPATITIS B

REACTIONS (2)
  - HEPATIC NEOPLASM MALIGNANT [None]
  - ALPHA 1 FOETOPROTEIN INCREASED [None]
